FAERS Safety Report 5101912-6 (Version None)
Quarter: 2006Q3

REPORT INFORMATION
  Report Type: 
  Country: None (occurrence: None)
  Receive Date: 20060907
  Receipt Date: 20060825
  Transmission Date: 20061208
  Serious: Yes (Other)
  Sender: FDA-Public Use
  Company Number: 2006VX001205

PATIENT
  Age: 23 Year
  Sex: Female

DRUGS (3)
  1. INTERFERON ALFACON-1 [Suspect]
     Indication: HEPATITIS C
     Dosage: 09 UG; TIW; SC
     Route: 058
     Dates: start: 20060717, end: 20060814
  2. ORAL CONTRACEPTIVE NOS [Concomitant]
  3. LEXAPRO [Concomitant]

REACTIONS (2)
  - DRUG EXPOSURE DURING PREGNANCY [None]
  - VAGINAL HAEMORRHAGE [None]
